FAERS Safety Report 25394692 (Version 1)
Quarter: 2025Q2

REPORT INFORMATION
  Report Type: Spontaneous
  Country: NZ (occurrence: NZ)
  Receive Date: 20250604
  Receipt Date: 20250604
  Transmission Date: 20250716
  Serious: Yes (Other)
  Sender: GE HEALTHCARE
  Company Number: NZ-GE HEALTHCARE-2025CSU007094

PATIENT
  Age: 65 Year
  Sex: Female
  Weight: 170 kg

DRUGS (2)
  1. CLARISCAN [Suspect]
     Active Substance: GADOTERATE MEGLUMINE
     Indication: Magnetic resonance imaging pelvic
     Route: 042
     Dates: start: 20250522
  2. Spazmol [Concomitant]
     Indication: Muscle spasms
     Route: 042
     Dates: start: 20250522, end: 20250522

REACTIONS (3)
  - Vision blurred [Recovered/Resolved]
  - Palpitations [Recovered/Resolved]
  - Fatigue [Recovered/Resolved]

NARRATIVE: CASE EVENT DATE: 20250522
